FAERS Safety Report 9231908 (Version 1)
Quarter: 2013Q2

REPORT INFORMATION
  Report Type: Spontaneous
  Country: BR (occurrence: BR)
  Receive Date: 20130415
  Receipt Date: 20130415
  Transmission Date: 20140414
  Serious: Yes (Other)
  Sender: FDA-Public Use
  Company Number: BR-ELI_LILLY_AND_COMPANY-BR201304001412

PATIENT
  Sex: Female
  Weight: 56 kg

DRUGS (6)
  1. FORTEO [Suspect]
     Indication: OSTEOPENIA
     Dosage: UNK UNK, QD
     Route: 058
     Dates: start: 201210
  2. FLUOXETINA [Concomitant]
     Dosage: UNK, QD
     Route: 065
  3. DIOVAN [Concomitant]
     Dosage: UNK, QD
     Route: 065
  4. OS-CAL [Concomitant]
     Dosage: UNK, BID
     Route: 065
  5. ATENOLOL [Concomitant]
     Dosage: 1 DF, QD
     Route: 065
  6. BUSPIRONE HYDROCHLORIDE [Concomitant]
     Dosage: 3.5 DF, UNK
     Route: 065

REACTIONS (2)
  - Device breakage [Recovered/Resolved]
  - Off label use [Unknown]
